FAERS Safety Report 5488400-2 (Version None)
Quarter: 2007Q3

REPORT INFORMATION
  Report Type: 
  Country: None (occurrence: None)
  Receive Date: 20070927
  Receipt Date: 20070519
  Transmission Date: 20080115
  Serious: No
  Sender: FDA-Public Use
  Company Number: US-CVT-070112

PATIENT
  Age: 73 Year
  Sex: Female

DRUGS (10)
  1. RANEXA [Suspect]
     Indication: ANGINA PECTORIS
     Dosage: 500 MG, BID, ORAL
     Route: 048
     Dates: start: 20070510, end: 20070511
  2. PLAVIX [Concomitant]
  3. METOPROLOL TARTRATE [Concomitant]
  4. NEXIUM [Concomitant]
  5. CRESTOR [Concomitant]
  6. ZETIA [Concomitant]
  7. ISOSORBIDE (ISOSORBIDE) [Concomitant]
  8. NITROQUICK (GLYCERYL TRINITRATE) [Concomitant]
  9. NORTRIPTYLINE HCL [Concomitant]
  10. ZESTRIL [Concomitant]

REACTIONS (1)
  - HYPERSENSITIVITY [None]
